FAERS Safety Report 10027803 (Version 1)
Quarter: 2014Q1

REPORT INFORMATION
  Report Type: Spontaneous
  Country: IT (occurrence: None)
  Receive Date: 20140318
  Receipt Date: 20140318
  Transmission Date: 20141002
  Serious: Yes (Life-Threatening, Disabling)
  Sender: FDA-Public Use
  Company Number: 2014MPI00208

PATIENT
  Age: 37 Year
  Sex: Female

DRUGS (1)
  1. BRENTUXIMAB VEDOTIN (BRENTUXIMAB VEDOTIN) INJECTION [Suspect]
     Indication: HODGKIN^S DISEASE

REACTIONS (5)
  - Nervous system disorder [None]
  - Visual field defect [None]
  - Visual acuity reduced [None]
  - Stupor [None]
  - Aphasia [None]
